FAERS Safety Report 26181042 (Version 1)
Quarter: 2025Q4

REPORT INFORMATION
  Report Type: Report from Study
  Country: SA (occurrence: SA)
  Receive Date: 20251221
  Receipt Date: 20251221
  Transmission Date: 20260118
  Serious: Yes (Hospitalization)
  Sender: BIOGEN
  Company Number: SA-BIOGEN-2025BI01320747

PATIENT
  Age: 23 Year
  Sex: Male
  Weight: 54.5 kg

DRUGS (2)
  1. SPINRAZA [Suspect]
     Active Substance: NUSINERSEN
     Indication: Spinal muscular atrophy
     Dates: start: 20240218
  2. SPINRAZA [Suspect]
     Active Substance: NUSINERSEN
     Dosage: DOSAGE TEXT:LOADING DOSES (0, 14, 28, 63) THEN 1 MAINTENANCE DOSE EVERY 4 MONTHS LAST DOSE ON 08 MAY 2025
     Dates: start: 20240218

REACTIONS (2)
  - Cholelithiasis [Recovered/Resolved]
  - Urinary tract infection [Recovered/Resolved]

NARRATIVE: CASE EVENT DATE: 20250807
